FAERS Safety Report 21490276 (Version 1)
Quarter: 2022Q4

REPORT INFORMATION
  Report Type: Spontaneous
  Country: US (occurrence: US)
  Receive Date: 20221021
  Receipt Date: 20221021
  Transmission Date: 20230112
  Serious: No
  Sender: FDA-Public Use
  Company Number: US-CELLTRION INC.-2022US010662

PATIENT

DRUGS (1)
  1. INFLECTRA [Suspect]
     Active Substance: INFLIXIMAB-DYYB
     Indication: Product use in unapproved indication
     Dosage: 900 MG, CYCLIC (Q 5 WEEKS QUANTITY: 9 REFILLS: 12)
     Route: 065

REACTIONS (1)
  - Unevaluable event [Unknown]
